FAERS Safety Report 4866438-3 (Version None)
Quarter: 2005Q4

REPORT INFORMATION
  Report Type: 
  Country: None (occurrence: None)
  Receive Date: 20051227
  Receipt Date: 20051130
  Transmission Date: 20060501
  Serious: Yes (Death, Hospitalization, Other)
  Sender: FDA-Public Use
  Company Number: US-MERCK-0512USA00063

PATIENT
  Age: 55 Year
  Sex: Male
  Weight: 127 kg

DRUGS (11)
  1. VIOXX [Suspect]
     Indication: PAIN MANAGEMENT
     Route: 048
     Dates: start: 20030501, end: 20031128
  2. INSULIN [Concomitant]
     Route: 065
  3. GLUCOTROL XL [Concomitant]
     Route: 065
  4. LASIX [Concomitant]
     Route: 065
  5. IMDUR [Concomitant]
     Route: 065
  6. ECOTRIN [Concomitant]
     Route: 065
  7. COZAAR [Concomitant]
     Route: 065
  8. LIPITOR [Concomitant]
     Route: 065
  9. NITRO [Concomitant]
     Route: 065
  10. CELEXA [Concomitant]
     Route: 065
  11. LOPRESSOR [Concomitant]
     Route: 065

REACTIONS (4)
  - ANGINA PECTORIS [None]
  - CARDIOVASCULAR DISORDER [None]
  - HYPERTENSIVE HEART DISEASE [None]
  - MYOCARDIAL INFARCTION [None]
